FAERS Safety Report 4750578-3 (Version None)
Quarter: 2005Q3

REPORT INFORMATION
  Report Type: 
  Country: None (occurrence: None)
  Receive Date: 20050823
  Receipt Date: 20050811
  Transmission Date: 20060218
  Serious: Yes (Death, Life-Threatening)
  Sender: FDA-Public Use
  Company Number: JP-SANOFI-SYNTHELABO-A01200505590

PATIENT
  Age: 55 Year
  Sex: Male

DRUGS (8)
  1. MILRILA [Suspect]
     Indication: CARDIAC FAILURE
     Dosage: UNK
     Route: 042
     Dates: start: 20050809, end: 20050811
  2. MILRILA [Suspect]
     Dosage: UNK
     Route: 042
     Dates: start: 20050809, end: 20050811
  3. INOVAN [Concomitant]
     Indication: DRUG USE FOR UNKNOWN INDICATION
     Dosage: UNK
     Route: 042
     Dates: start: 20050804, end: 20050811
  4. DOBUTREX [Concomitant]
     Indication: DRUG USE FOR UNKNOWN INDICATION
     Dosage: UNK
     Route: 042
     Dates: start: 20050805, end: 20050811
  5. NORADRENALIN [Concomitant]
     Indication: DRUG USE FOR UNKNOWN INDICATION
     Dosage: UNK
     Route: 042
     Dates: start: 20050806, end: 20050811
  6. FOY [Concomitant]
     Indication: DRUG USE FOR UNKNOWN INDICATION
     Dosage: 2000 MG
     Route: 042
     Dates: start: 20050804, end: 20050811
  7. DIPRIVAN [Concomitant]
     Indication: DRUG USE FOR UNKNOWN INDICATION
     Dosage: UNK
     Route: 042
     Dates: start: 20050807, end: 20050811
  8. INSULIN [Concomitant]
     Indication: DRUG USE FOR UNKNOWN INDICATION
     Dosage: UNK
     Route: 042
     Dates: start: 20050810, end: 20050811

REACTIONS (2)
  - BLOOD PRESSURE DECREASED [None]
  - DRUG LEVEL INCREASED [None]
